FAERS Safety Report 25132222 (Version 1)
Quarter: 2025Q1

REPORT INFORMATION
  Report Type: Report from Study
  Country: CO (occurrence: CO)
  Receive Date: 20250328
  Receipt Date: 20250328
  Transmission Date: 20250408
  Serious: Yes (Hospitalization, Other)
  Sender: ELI LILLY AND COMPANY
  Company Number: CO-ELI_LILLY_AND_COMPANY-CO202503008248

PATIENT
  Age: 65 Year
  Sex: Female

DRUGS (1)
  1. VERZENIO [Suspect]
     Active Substance: ABEMACICLIB
     Indication: Breast cancer
     Dosage: 150 MG, BID
     Route: 048
     Dates: start: 20250228, end: 20250319

REACTIONS (14)
  - Haemoglobin decreased [Recovering/Resolving]
  - Blood creatinine increased [Recovering/Resolving]
  - Dehydration [Recovering/Resolving]
  - Diarrhoea [Recovering/Resolving]
  - Vomiting [Recovering/Resolving]
  - Abdominal pain upper [Not Recovered/Not Resolved]
  - Balance disorder [Recovering/Resolving]
  - Tremor [Recovering/Resolving]
  - Tongue dry [Recovering/Resolving]
  - Dyspnoea [Recovering/Resolving]
  - Agitation [Recovering/Resolving]
  - Nausea [Not Recovered/Not Resolved]
  - Platelet count decreased [Recovering/Resolving]
  - Asthenia [Recovering/Resolving]

NARRATIVE: CASE EVENT DATE: 20250228
